FAERS Safety Report 11158489 (Version 4)
Quarter: 2015Q2

REPORT INFORMATION
  Report Type: Spontaneous
  Country: US (occurrence: US)
  Receive Date: 20150603
  Receipt Date: 20150630
  Transmission Date: 20150821
  Serious: Yes (Other)
  Sender: FDA-Public Use
  Company Number: US-ASTRAZENECA-2014SE71280

PATIENT
  Age: 17199 Day
  Sex: Female
  Weight: 70 kg

DRUGS (16)
  1. PROGESTERONE. [Concomitant]
     Active Substance: PROGESTERONE
  2. VALIUM [Concomitant]
     Active Substance: DIAZEPAM
     Route: 065
  3. MOBIC [Concomitant]
     Active Substance: MELOXICAM
     Route: 065
  4. BYETTA [Suspect]
     Active Substance: EXENATIDE
     Route: 065
     Dates: start: 20061031
  5. RESTORIL [Concomitant]
     Active Substance: TEMAZEPAM
  6. RELAFEN [Concomitant]
     Active Substance: NABUMETONE
     Dates: start: 20090504
  7. CEPHALEXIN. [Concomitant]
     Active Substance: CEPHALEXIN
     Dates: start: 20100806
  8. BYETTA [Suspect]
     Active Substance: EXENATIDE
     Route: 065
     Dates: start: 20070101, end: 20081231
  9. DIFLUCAN [Concomitant]
     Active Substance: FLUCONAZOLE
  10. BONIVA [Concomitant]
     Active Substance: IBANDRONATE SODIUM
  11. FLEXERIL [Concomitant]
     Active Substance: CYCLOBENZAPRINE HYDROCHLORIDE
  12. DICLOFENAC [Concomitant]
     Active Substance: DICLOFENAC
     Route: 048
  13. METHOCARBAMOL. [Concomitant]
     Active Substance: METHOCARBAMOL
     Dates: start: 20090427
  14. CHANTIX [Concomitant]
     Active Substance: VARENICLINE TARTRATE
  15. ESTROGEN [Concomitant]
     Active Substance: ESTRONE\SUS SCROFA OVARY
  16. NAPROXEN. [Concomitant]
     Active Substance: NAPROXEN
     Dates: start: 20011001

REACTIONS (2)
  - Thyroid cancer [Unknown]
  - Goitre [Unknown]

NARRATIVE: CASE EVENT DATE: 20090901
